FAERS Safety Report 5850799-2 (Version None)
Quarter: 2008Q3

REPORT INFORMATION
  Report Type: 
  Country: None (occurrence: None)
  Receive Date: 20080820
  Receipt Date: 20080812
  Transmission Date: 20090109
  Serious: Yes (Other)
  Sender: FDA-Public Use
  Company Number: US-JNJFOC-20080803081

PATIENT
  Sex: Female
  Weight: 131.54 kg

DRUGS (4)
  1. TOPAMAX [Suspect]
     Route: 048
  2. TOPAMAX [Suspect]
     Indication: MIGRAINE PROPHYLAXIS
     Dosage: 25 MG TO 200 MG DAILY
     Route: 048
  3. CELEBREX [Concomitant]
     Indication: BACK PAIN
     Route: 048
  4. PAXIL [Concomitant]
     Indication: DEPRESSION
     Dosage: 30 TO 40 MG DAILY
     Route: 048

REACTIONS (3)
  - CATARACT [None]
  - EYE OPERATION [None]
  - VISUAL IMPAIRMENT [None]
